FAERS Safety Report 21193858 (Version 7)
Quarter: 2023Q2

REPORT INFORMATION
  Report Type: Report from Study
  Country: US (occurrence: US)
  Receive Date: 20220810
  Receipt Date: 20230620
  Transmission Date: 20230722
  Serious: Yes (Hospitalization)
  Sender: FDA-Public Use
  Company Number: US-BIOGEN-2022BI01145405

PATIENT
  Sex: Female
  Weight: 63.5 kg

DRUGS (29)
  1. TYSABRI [Suspect]
     Active Substance: NATALIZUMAB
     Indication: Relapsing-remitting multiple sclerosis
     Route: 050
     Dates: start: 20110301, end: 20181120
  2. TYSABRI [Suspect]
     Active Substance: NATALIZUMAB
     Route: 050
     Dates: start: 20210614, end: 20220317
  3. TYSABRI [Suspect]
     Active Substance: NATALIZUMAB
     Route: 050
     Dates: start: 20110301, end: 202206
  4. CYTOMEL [Concomitant]
     Active Substance: LIOTHYRONINE SODIUM
     Indication: Product used for unknown indication
     Route: 050
  5. BENZONATATE [Concomitant]
     Active Substance: BENZONATATE
     Indication: Cough
     Dosage: TAKE 1 CAPSULE (200 MG) BY MOUTH 3 TIMES DAILY AS NEEDED FOR COUGH
     Route: 050
  6. XYLOCAINE [Concomitant]
     Active Substance: LIDOCAINE HYDROCHLORIDE
     Indication: Oropharyngeal pain
     Dosage: MIX 50/50 WITH MAALOX AND GARGLE 5 ML^S EVERY 3 HOURS AS NEEDED FOR SORE THROAT
     Route: 050
  7. PROMETHAZINE DM [Concomitant]
     Active Substance: DEXTROMETHORPHAN HYDROBROMIDE\PROMETHAZINE HYDROCHLORIDE
     Indication: Product used for unknown indication
     Dosage: 6.25-15MG/5ML SYRUP, TAKE 5 ML BY MOUTH ATE BEDTIME
     Route: 050
  8. ZOFRAN [Concomitant]
     Active Substance: ONDANSETRON HYDROCHLORIDE
     Indication: Nausea
     Dosage: TAKE 1 TABLET BY MOUTH EVERY 6 HRS AS NEEDED FOR NAUSEA
     Route: 050
  9. TYLENOL [Concomitant]
     Active Substance: ACETAMINOPHEN
     Indication: Pain
     Dosage: TAKE 3 TABLETS (975 MG) BY MOUTH EVERY 8 HRS FOR PAIN
     Route: 050
  10. VOLTAREN [Concomitant]
     Active Substance: DICLOFENAC SODIUM
     Indication: Product used for unknown indication
     Dosage: APPLY 2 GRAMS 4 TIMES DAILY AS NEEDED (APPLY TO RIGHT KNEE OR HIP AS NEEDED FOR PAIN). DO NOT PUT...
     Route: 050
  11. LIDOCAINE [Concomitant]
     Active Substance: LIDOCAINE
     Indication: Product used for unknown indication
     Dosage: APPLY 1 PATCH TO THE SKIN EVERY 24 HRS. APPLY 12 HRS REMOVE FOR 12 HRS
     Route: 050
  12. magnesium chloride;calcium [Concomitant]
     Indication: Product used for unknown indication
     Route: 050
  13. ALTEPLASE [Concomitant]
     Active Substance: ALTEPLASE
     Indication: Product used for unknown indication
     Dosage: 2 MG BY INTRACATHETER ROUTE AS NEEDED
     Route: 050
  14. ELIQUIS [Concomitant]
     Active Substance: APIXABAN
     Indication: Product used for unknown indication
     Route: 050
  15. HEPARIN [Concomitant]
     Active Substance: HEPARIN SODIUM
     Indication: Product used for unknown indication
     Dosage: 10 UNIT/ML SOLUTION, 3ML (30 UNITS) BY INTRACATHETER ROUTE AS NEEDED
     Route: 050
  16. VENTOLIN HFA [Concomitant]
     Active Substance: ALBUTEROL SULFATE
     Indication: Wheezing
     Dosage: INHALE 2 PUFFS INTO THE LUNGS EVERY 4 HRS AS NEEDED FOR WHEEZING
     Route: 050
  17. LIPITOR [Concomitant]
     Active Substance: ATORVASTATIN CALCIUM
     Indication: Product used for unknown indication
     Dosage: TAKE 1 TABLET BY MOUTH AT BEDTIME
     Route: 050
  18. LIORESAL [Concomitant]
     Active Substance: BACLOFEN
     Indication: Muscle spasms
     Dosage: TAKE 1 TABLET AT BEDTIME AS NEEDED FOR MUSCLE SPASM
     Route: 050
  19. WELLBUTRIN XL [Concomitant]
     Active Substance: BUPROPION HYDROCHLORIDE
     Indication: Product used for unknown indication
     Dosage: TAKE 1 TABLET DAILY
     Route: 050
  20. CELEXA [Concomitant]
     Active Substance: CITALOPRAM HYDROBROMIDE
     Indication: Product used for unknown indication
     Route: 050
  21. CYANOCOBALAMIN [Concomitant]
     Active Substance: CYANOCOBALAMIN
     Indication: Product used for unknown indication
     Dosage: 1000MCG/ML, INJECT 1 ML IN THE MUSCLE EVERY 30 DAYS
     Route: 050
  22. NEURONTIN [Concomitant]
     Active Substance: GABAPENTIN
     Indication: Product used for unknown indication
     Route: 050
  23. SYNTHROID [Concomitant]
     Active Substance: LEVOTHYROXINE SODIUM
     Indication: Product used for unknown indication
     Dosage: GIVE MORE THAN 30 MINUTES BEFORE A MEAL ON AN EMPTY STOMACH
     Route: 050
  24. PRILOSEC [Concomitant]
     Active Substance: OMEPRAZOLE MAGNESIUM
     Indication: Product used for unknown indication
     Dosage: TAKE 20 MG BY MOUTH EVERY MORNING BEFORE BREAKFAST
     Route: 050
  25. VITAMIN D3 [Concomitant]
     Active Substance: CHOLECALCIFEROL
     Indication: Product used for unknown indication
     Dosage: TAKE 2000 UNITS BY MOUTH DAILY
     Route: 050
  26. Multivitamin Adult Extra C [Concomitant]
     Indication: Product used for unknown indication
     Route: 050
  27. NITROSTAT [Concomitant]
     Active Substance: NITROGLYCERIN
     Indication: Chest pain
     Dosage: PLACE 0.4MG UNDER THE TONGUE EVERY 5 MINUTES AS NEEDED FOR CHEST PAIN
     Route: 050
  28. KEFLEX [Concomitant]
     Active Substance: CEPHALEXIN
     Indication: Prophylaxis
     Route: 050
  29. CEFADROXIL [Concomitant]
     Active Substance: CEFADROXIL
     Indication: Prophylaxis
     Route: 050

REACTIONS (3)
  - Staphylococcal bacteraemia [Recovered/Resolved]
  - Septic arthritis staphylococcal [Recovered/Resolved]
  - Staphylococcal osteomyelitis [Unknown]
